FAERS Safety Report 14267907 (Version 1)
Quarter: 2017Q4

REPORT INFORMATION
  Report Type: Spontaneous
  Country: US (occurrence: US)
  Receive Date: 20171211
  Receipt Date: 20171211
  Transmission Date: 20180321
  Serious: No
  Sender: FDA-Public Use
  Company Number: US-ROCHE-2017493

PATIENT
  Sex: Male

DRUGS (2)
  1. RITUXAN HYCELA [Suspect]
     Active Substance: HYALURONIDASE (HUMAN RECOMBINANT)\RITUXIMAB
     Indication: LYMPHOMA
     Dosage: UNKNOWN
     Route: 058
     Dates: start: 20171023
  2. ASPIRIN CHILD [Concomitant]
     Dosage: UNKNOWN
     Route: 065

REACTIONS (1)
  - Contusion [Not Recovered/Not Resolved]
